FAERS Safety Report 8326739-3 (Version None)
Quarter: 2012Q2

REPORT INFORMATION
  Report Type: 
  Country: None (occurrence: None)
  Receive Date: 20120501
  Receipt Date: 20120418
  Transmission Date: 20120825
  Serious: Yes (Hospitalization)
  Sender: FDA-Public Use
  Company Number: CN-JNJFOC-20120413518

PATIENT
  Sex: Female
  Weight: 13.5 kg

DRUGS (2)
  1. TOPAMAX [Suspect]
     Route: 048
  2. TOPAMAX [Suspect]
     Indication: EPILEPSY
     Dosage: 0.5 MG TO 1 MG/KG
     Route: 048
     Dates: start: 20110708, end: 20110803

REACTIONS (3)
  - DRUG ADMINISTERED TO PATIENT OF INAPPROPRIATE AGE [None]
  - ALANINE AMINOTRANSFERASE INCREASED [None]
  - ASPARTATE AMINOTRANSFERASE INCREASED [None]
